FAERS Safety Report 16486763 (Version 10)
Quarter: 2020Q3

REPORT INFORMATION
  Report Type: Spontaneous
  Country: FR (occurrence: FR)
  Receive Date: 20190627
  Receipt Date: 20200728
  Transmission Date: 20201102
  Serious: Yes (Death, Hospitalization, Other)
  Sender: FDA-Public Use
  Company Number: FR-EXELIXIS-CABO-18021655

PATIENT
  Sex: Male
  Weight: 85 kg

DRUGS (9)
  1. GANFORT [Concomitant]
     Active Substance: BIMATOPROST\TIMOLOL
     Indication: GLAUCOMA
     Dosage: UNK
     Route: 065
     Dates: start: 20180101
  2. EUPRESSYL [Suspect]
     Active Substance: URAPIDIL
     Dosage: 60 MG, QD
     Route: 065
     Dates: start: 20180703, end: 20181015
  3. EUPRESSYL [Suspect]
     Active Substance: URAPIDIL
     Dosage: 60 MG, QD (30 MG, BID)
     Route: 065
  4. VOTRIENT [Suspect]
     Active Substance: PAZOPANIB HYDROCHLORIDE
     Dosage: 600 MG, QD
     Route: 048
     Dates: start: 20180816, end: 20190115
  5. CAPECITABINE. [Concomitant]
     Active Substance: CAPECITABINE
     Indication: NEOPLASM
     Dosage: UNK
     Route: 065
     Dates: start: 20180101
  6. CABOMETYX [Suspect]
     Active Substance: CABOZANTINIB S-MALATE
     Indication: RENAL CANCER METASTATIC
     Dosage: 60 MG, QD
     Route: 048
     Dates: start: 20190121, end: 20190312
  7. METFORMIN [Concomitant]
     Active Substance: METFORMIN HYDROCHLORIDE
     Indication: TYPE 2 DIABETES MELLITUS
     Dosage: UNK
     Route: 065
     Dates: start: 20180101
  8. EUPRESSYL [Suspect]
     Active Substance: URAPIDIL
     Indication: HYPERTENSION
     Dosage: 30 MG, BID (60 MG, QD)
     Route: 065
  9. VOTRIENT [Suspect]
     Active Substance: PAZOPANIB HYDROCHLORIDE
     Indication: RENAL CANCER METASTATIC
     Dosage: 800 MG, QD
     Route: 048
     Dates: start: 20180509

REACTIONS (19)
  - Diarrhoea [Recovered/Resolved]
  - Fatigue [Recovering/Resolving]
  - General physical health deterioration [Fatal]
  - Bacterial infection [Fatal]
  - Pyrexia [Recovered/Resolved]
  - Dyspnoea [Recovered/Resolved]
  - Hepatocellular injury [Recovered/Resolved]
  - Cough [Recovered/Resolved with Sequelae]
  - Asthenia [Fatal]
  - Back pain [Fatal]
  - Platelet count increased [Recovered/Resolved]
  - Neutrophil count increased [Recovered/Resolved]
  - Device related infection [Fatal]
  - Fatigue [Recovered/Resolved]
  - Dyspnoea [Recovered/Resolved]
  - Asthenia [Not Recovered/Not Resolved]
  - Chest pain [Recovered/Resolved]
  - Hypertension [Recovered/Resolved]
  - Metastases to the mediastinum [Fatal]

NARRATIVE: CASE EVENT DATE: 20180523
